FAERS Safety Report 22349025 (Version 1)
Quarter: 2023Q2

REPORT INFORMATION
  Report Type: Spontaneous
  Country: PT (occurrence: PT)
  Receive Date: 20230522
  Receipt Date: 20230522
  Transmission Date: 20230722
  Serious: Yes (Other)
  Sender: FDA-Public Use
  Company Number: PT-INFARMED-E202305-251

PATIENT
  Age: 35 Year
  Sex: Female
  Weight: 80 kg

DRUGS (3)
  1. DEFLAZACORT [Suspect]
     Active Substance: DEFLAZACORT
     Indication: Rebound nasal congestion
     Dosage: 12 MILLIGRAM, ONCE A DAY (6MG, 2 TIMES A DAY FOR 3 DAYS)
     Route: 048
     Dates: start: 20230418, end: 20230421
  2. DESLORATADINE\PSEUDOEPHEDRINE [Suspect]
     Active Substance: DESLORATADINE\PSEUDOEPHEDRINE
     Indication: Rebound nasal congestion
     Dosage: 245 MILLIGRAM, ONCE A DAY (1 TABLET 2 TIMES A DAY FOR 10 DAYS)
     Route: 048
     Dates: start: 20230418, end: 20230423
  3. BUDESONIDE [Suspect]
     Active Substance: BUDESONIDE
     Indication: Rebound nasal congestion
     Dosage: 400 MICROGRAM, ONCE A DAY (1 INHALATION IN EACH NOSTRIL 2 TIMES A DAY FOR 10 DAYS)
     Route: 045
     Dates: start: 20230418, end: 20230421

REACTIONS (14)
  - Anxiety [Recovered/Resolved]
  - Heart rate increased [Recovered/Resolved]
  - Dyspepsia [Recovered/Resolved]
  - Vomiting [Recovered/Resolved]
  - Decreased appetite [Recovered/Resolved]
  - Diarrhoea [Recovered/Resolved]
  - Insomnia [Recovered/Resolved]
  - Eructation [Recovered/Resolved]
  - Dry mouth [Recovered/Resolved]
  - Chills [Recovered/Resolved]
  - Nausea [Recovered/Resolved]
  - Fatigue [Recovered/Resolved]
  - Agitation [Recovered/Resolved]
  - Abdominal pain [Recovered/Resolved]
